FAERS Safety Report 5281029-0 (Version None)
Quarter: 2007Q1

REPORT INFORMATION
  Report Type: 
  Country: None (occurrence: None)
  Receive Date: 20061229
  Receipt Date: 20060817
  Transmission Date: 20070707
  Serious: Yes (Other)
  Sender: FDA-Public Use
  Company Number: 2006UW16434

PATIENT
  Age: 51 Year
  Sex: Female
  Weight: 57.152 kg

DRUGS (8)
  1. CRESTOR [Suspect]
     Indication: BLOOD CHOLESTEROL INCREASED
     Dosage: 2.5 MG PO
     Route: 048
     Dates: start: 20060816
  2. HYZAAR [Concomitant]
  3. ATENOLOL [Concomitant]
  4. FEXOFENADINE [Concomitant]
  5. ZANTAC [Concomitant]
  6. VITAMINE E [Concomitant]
  7. CALTRATE + D [Concomitant]
  8. CENTRUM SILVER [Concomitant]

REACTIONS (2)
  - HYPERHIDROSIS [None]
  - PALPITATIONS [None]
